FAERS Safety Report 7883617-1 (Version None)
Quarter: 2011Q4

REPORT INFORMATION
  Report Type: 
  Country: None (occurrence: None)
  Receive Date: 20111102
  Receipt Date: 20111025
  Transmission Date: 20120403
  Serious: Yes (Hospitalization)
  Sender: FDA-Public Use
  Company Number: IE-US-EMD SERONO, INC.-7091923

PATIENT
  Sex: Female

DRUGS (11)
  1. REBIF [Suspect]
     Indication: RELAPSING-REMITTING MULTIPLE SCLEROSIS
     Route: 058
     Dates: start: 20060920
  2. ZOLTON [Concomitant]
  3. BACLOFEN [Concomitant]
  4. METHYLPREDNISOLONE [Concomitant]
     Route: 042
  5. VESITRIM [Concomitant]
  6. CALCHEW [Concomitant]
  7. FOSAVAN [Concomitant]
  8. ENOXAPARIN SODIUM [Concomitant]
     Route: 058
  9. EFFEXOR [Concomitant]
  10. LAMICTAL [Concomitant]
  11. FOLIC ACID [Concomitant]

REACTIONS (3)
  - SENSATION OF HEAVINESS [None]
  - MOBILITY DECREASED [None]
  - PAIN IN EXTREMITY [None]
